FAERS Safety Report 24665485 (Version 1)
Quarter: 2024Q4

REPORT INFORMATION
  Report Type: Spontaneous
  Country: US (occurrence: None)
  Receive Date: 20241126
  Receipt Date: 20241126
  Transmission Date: 20250115
  Serious: No
  Sender: Public
  Company Number: None

PATIENT
  Sex: 0

DRUGS (2)
  1. VORICONAZOLE [Suspect]
     Active Substance: VORICONAZOLE
  2. VORICONAZOLE [Suspect]
     Active Substance: VORICONAZOLE

REACTIONS (2)
  - Treatment failure [None]
  - Drug ineffective [None]
